FAERS Safety Report 20417506 (Version 1)
Quarter: 2022Q1

REPORT INFORMATION
  Report Type: Spontaneous
  Country: US (occurrence: US)
  Receive Date: 20220202
  Receipt Date: 20220202
  Transmission Date: 20220423
  Serious: No
  Sender: FDA-Public Use
  Company Number: US-PFIZER INC-202101137464

PATIENT
  Age: 66 Year
  Sex: Female
  Weight: 73.48 kg

DRUGS (2)
  1. CHANTIX [Suspect]
     Active Substance: VARENICLINE TARTRATE
     Indication: Smoking cessation therapy
     Dosage: UNK
     Dates: start: 20210804
  2. LISINOPRIL [Concomitant]
     Active Substance: LISINOPRIL
     Indication: Blood pressure abnormal
     Dosage: ABOUT 20MG, 1X/DAY

REACTIONS (9)
  - Palpitations [Unknown]
  - Vertigo [Unknown]
  - Chills [Unknown]
  - Dizziness [Unknown]
  - Hearing disability [Unknown]
  - Nystagmus [Unknown]
  - Constipation [Unknown]
  - Abdominal discomfort [Unknown]
  - Feeling abnormal [Unknown]
